FAERS Safety Report 24601495 (Version 1)
Quarter: 2024Q4

REPORT INFORMATION
  Report Type: Spontaneous
  Country: CN (occurrence: CN)
  Receive Date: 20241111
  Receipt Date: 20241111
  Transmission Date: 20250115
  Serious: Yes (Other)
  Sender: ROCHE
  Company Number: CN-ROCHE-10000127490

PATIENT
  Age: 52 Year
  Sex: Male

DRUGS (5)
  1. ATEZOLIZUMAB [Suspect]
     Active Substance: ATEZOLIZUMAB
     Indication: Hepatic cancer
     Route: 065
     Dates: start: 2024
  2. IDARUBICIN [Concomitant]
     Active Substance: IDARUBICIN
     Indication: Hepatic cancer
  3. NEDAPLATIN [Concomitant]
     Active Substance: NEDAPLATIN
     Indication: Hepatic cancer
  4. LIPIODOL [Concomitant]
     Active Substance: ETHIODIZED OIL
     Indication: Hepatic cancer
  5. RALTITREXED [Concomitant]
     Active Substance: RALTITREXED
     Indication: Hepatic cancer

REACTIONS (2)
  - Platelet count decreased [Recovering/Resolving]
  - Off label use [Unknown]

NARRATIVE: CASE EVENT DATE: 20240101
